FAERS Safety Report 5202542-8 (Version None)
Quarter: 2006Q4

REPORT INFORMATION
  Report Type: 
  Country: None (occurrence: None)
  Receive Date: 20061018
  Receipt Date: 20050930
  Transmission Date: 20070319
  Serious: Yes (Disabling)
  Sender: FDA-Public Use
  Company Number: 2005105324

PATIENT
  Sex: Male

DRUGS (13)
  1. INSPRA [Suspect]
     Indication: ILL-DEFINED DISORDER
     Dosage: 50 MG (1 IN 1 D); UNKNOWN; 75 MG ( 2 IN 1 D); UNK;
     Dates: start: 20050622
  2. DARVOCET-N 100 [Concomitant]
  3. TAMSULOSIN HCL [Concomitant]
  4. DOXEPIN HCL [Concomitant]
  5. NOVOLOG [Concomitant]
  6. FLOVENT [Concomitant]
  7. ATROVENT [Concomitant]
  8. ASPIRIN [Concomitant]
  9. ATENOLOL [Concomitant]
  10. HYTRIN [Concomitant]
  11. MEDROL [Concomitant]
  12. TUSSIONEX (^FISONS^ (HYDROCODONE, PENYLTOLOXAMINE) [Concomitant]
  13. MICARDIS [Concomitant]

REACTIONS (3)
  - BLOOD POTASSIUM INCREASED [None]
  - BLOOD PRESSURE SYSTOLIC INCREASED [None]
  - BLOOD SODIUM DECREASED [None]
